FAERS Safety Report 6847708-6 (Version None)
Quarter: 2010Q3

REPORT INFORMATION
  Report Type: 
  Country: None (occurrence: None)
  Receive Date: 20100716
  Receipt Date: 20100709
  Transmission Date: 20110219
  Serious: Yes (Other)
  Sender: FDA-Public Use
  Company Number: PHHY2010US45190

PATIENT
  Sex: Male

DRUGS (1)
  1. FANAPT [Suspect]
     Route: 048

REACTIONS (1)
  - CONVULSION [None]
